FAERS Safety Report 9100425 (Version 2)
Quarter: 2013Q1

REPORT INFORMATION
  Report Type: Spontaneous
  Country: JP (occurrence: JP)
  Receive Date: 20130116
  Receipt Date: 20130116
  Transmission Date: 20140127
  Serious: Yes (Hospitalization)
  Sender: FDA-Public Use
  Company Number: PHHY2012JP095248

PATIENT
  Age: 12 Year
  Sex: Female
  Weight: 37 kg

DRUGS (10)
  1. NEORAL [Suspect]
     Indication: DERMATITIS ATOPIC
     Dosage: 100 MG, DAILY
     Route: 048
     Dates: start: 20120327, end: 201210
  2. ATARAX-P [Concomitant]
     Indication: DERMATITIS ATOPIC
     Dosage: 50 MG, UNK
     Route: 048
     Dates: start: 20110712, end: 201210
  3. INTAL [Concomitant]
     Indication: DERMATITIS ATOPIC
     Dosage: 3 G, UNK
     Route: 048
     Dates: start: 20120221, end: 201210
  4. PREDONINE [Concomitant]
     Dosage: 10 MG, UNK
     Route: 048
     Dates: start: 20120818
  5. ALLELOCK [Concomitant]
     Indication: DERMATITIS ATOPIC
     Dosage: 10 MG, UNK
     Route: 048
     Dates: start: 20111227, end: 201210
  6. MINOPHAGEN C [Concomitant]
  7. VISDERM [Concomitant]
     Indication: DERMATITIS ATOPIC
     Route: 061
     Dates: start: 20110809
  8. PROPETO [Concomitant]
     Indication: DERMATITIS ATOPIC
     Dates: start: 20110712
  9. RINDERON VG [Concomitant]
     Indication: DERMATITIS ATOPIC
     Route: 061
     Dates: start: 20110525
  10. GENOTROPIN [Concomitant]
     Indication: GROWTH RETARDATION
     Dosage: 1 MG, UNK
     Dates: start: 20081102

REACTIONS (6)
  - Mitochondrial encephalomyopathy [Unknown]
  - Nystagmus [Unknown]
  - Headache [Unknown]
  - Vomiting [Unknown]
  - Unresponsive to stimuli [Unknown]
  - Depressed level of consciousness [Unknown]
